FAERS Safety Report 14267700 (Version 1)
Quarter: 2017Q4

REPORT INFORMATION
  Report Type: Spontaneous
  Country: US (occurrence: None)
  Receive Date: 20171211
  Receipt Date: 20171211
  Transmission Date: 20180321
  Serious: Yes (Other)
  Sender: FDA-Public Use
  Company Number: None

PATIENT
  Age: 67 Year
  Sex: Male

DRUGS (1)
  1. ALBUTEROL. [Suspect]
     Active Substance: ALBUTEROL

REACTIONS (4)
  - Drug ineffective [None]
  - Cough [None]
  - Dyspnoea [None]
  - Therapy change [None]

NARRATIVE: CASE EVENT DATE: 20171128
